FAERS Safety Report 25404653 (Version 1)
Quarter: 2025Q2

REPORT INFORMATION
  Report Type: Spontaneous
  Country: US (occurrence: US)
  Receive Date: 20250606
  Receipt Date: 20250606
  Transmission Date: 20250717
  Serious: No
  Sender: PIERRE FABRE MEDICAMENT
  Company Number: US-PFM-2024-03505

PATIENT
  Sex: Male
  Weight: 12.82 kg

DRUGS (2)
  1. HEMANGEOL [Suspect]
     Active Substance: PROPRANOLOL HYDROCHLORIDE
     Indication: Haemangioma
     Dosage: 4 ML, BID (2/DAY)
  2. HEMANGEOL [Suspect]
     Active Substance: PROPRANOLOL HYDROCHLORIDE
     Dosage: 5 ML, BID (2/DAY)

REACTIONS (6)
  - Infantile spitting up [Unknown]
  - Disease recurrence [Unknown]
  - Haemangioma [Unknown]
  - Vomiting [Unknown]
  - Product administered to patient of inappropriate age [Unknown]
  - Off label use [Unknown]
